FAERS Safety Report 8848728 (Version 2)
Quarter: 2012Q4

REPORT INFORMATION
  Report Type: 
  Country: US (occurrence: US)
  Receive Date: 20121018
  Receipt Date: 20121121
  Transmission Date: 20130627
  Serious: No
  Sender: FDA-Public Use
  Company Number: US-PFIZER INC-2012258599

PATIENT
  Age: 76 Year
  Sex: Female
  Weight: 76.19 kg

DRUGS (8)
  1. GABAPENTIN [Suspect]
     Indication: PAIN
     Dosage: 1200 mg (four of 300mg)), 1x/day
  2. VERAPAMIL [Concomitant]
     Dosage: 240 mg, 1x/day
  3. LOSARTAN [Concomitant]
     Dosage: 100 mg, 1x/day
  4. GUANFACINE [Concomitant]
     Indication: BLOOD PRESSURE HIGH
     Dosage: 2.5 mg, 1x/day
  5. OMEPRAZOLE [Concomitant]
     Dosage: 20 mg, 1x/day
  6. HYDROCHLOROTHIAZIDE [Concomitant]
     Dosage: 25 mg, 1x/day
  7. LORAZEPAM [Concomitant]
     Dosage: 0.5 mg, 2x/day
  8. METFORMIN [Concomitant]
     Dosage: 500 mg, 2x/day

REACTIONS (4)
  - Neuropathy peripheral [Unknown]
  - Drug ineffective [Unknown]
  - Dry mouth [Not Recovered/Not Resolved]
  - Wrong technique in drug usage process [Unknown]
